FAERS Safety Report 24074689 (Version 1)
Quarter: 2024Q3

REPORT INFORMATION
  Report Type: Spontaneous
  Country: US (occurrence: None)
  Receive Date: 20240710
  Receipt Date: 20240710
  Transmission Date: 20241017
  Serious: Yes (Hospitalization)
  Sender: Public
  Company Number: None

PATIENT
  Age: 55 Year
  Sex: Female
  Weight: 73.1 kg

DRUGS (7)
  1. PANOBINOSTAT [Suspect]
     Active Substance: PANOBINOSTAT
     Indication: Sickle cell disease
     Dosage: OTHER FREQUENCY : MON, WED,FRI;?
     Route: 048
     Dates: start: 20240322, end: 20240605
  2. LISINOPRIL [Concomitant]
     Active Substance: LISINOPRIL
  3. PROMETHAZINE [Concomitant]
     Active Substance: PROMETHAZINE HYDROCHLORIDE
  4. TIZANIDINE [Concomitant]
     Active Substance: TIZANIDINE
  5. PANTOPRAZOLE SODIUM [Concomitant]
     Active Substance: PANTOPRAZOLE SODIUM
  6. PERCOCET [Concomitant]
     Active Substance: ACETAMINOPHEN\OXYCODONE HYDROCHLORIDE
  7. SERTRALIZE [Concomitant]

REACTIONS (11)
  - Sickle cell anaemia with crisis [None]
  - Pneumonia [None]
  - Pulmonary fibrosis [None]
  - Sickle cell anaemia with crisis [None]
  - Bronchiectasis [None]
  - Interstitial lung disease [None]
  - Pneumonitis aspiration [None]
  - Thrombocytopenia [None]
  - Dehydration [None]
  - Hypovolaemia [None]
  - Acute kidney injury [None]

NARRATIVE: CASE EVENT DATE: 20240612
